FAERS Safety Report 4445302-8 (Version None)
Quarter: 2004Q3

REPORT INFORMATION
  Report Type: 
  Country: None (occurrence: None)
  Receive Date: 20040903
  Receipt Date: 20040818
  Transmission Date: 20050211
  Serious: Yes (Other)
  Sender: FDA-Public Use
  Company Number: DSA_24857_2004

PATIENT

DRUGS (3)
  1. LORAZEPAM [Suspect]
     Dates: end: 20040809
  2. ZYPREXA [Suspect]
     Dates: end: 20040808
  3. ZYPREXA [Concomitant]

REACTIONS (2)
  - DRUG EXPOSURE DURING PREGNANCY [None]
  - NEONATAL APNOEIC ATTACK [None]
